FAERS Safety Report 11345036 (Version 1)
Quarter: 2015Q3

REPORT INFORMATION
  Report Type: Spontaneous
  Country: US (occurrence: US)
  Receive Date: 20150806
  Receipt Date: 20150806
  Transmission Date: 20151125
  Serious: Yes (Other)
  Sender: FDA-Public Use
  Company Number: CHPA2015US009172

PATIENT
  Sex: Female

DRUGS (1)
  1. PERDIEM (SENNOSIDES A AND B) [Suspect]
     Active Substance: SENNOSIDES A AND B
     Indication: CONSTIPATION
     Dosage: 3 TSP WITH JUICE, UNK
     Route: 048

REACTIONS (2)
  - Constipation [Unknown]
  - Irritable bowel syndrome [Unknown]
